FAERS Safety Report 4322779-X (Version None)
Quarter: 2004Q1

REPORT INFORMATION
  Report Type: 
  Country: None (occurrence: None)
  Receive Date: 20040324
  Receipt Date: 20040305
  Transmission Date: 20041129
  Serious: Yes (Hospitalization)
  Sender: FDA-Public Use
  Company Number: JP-ROCHE-360594

PATIENT
  Age: 81 Year
  Sex: Female

DRUGS (16)
  1. PERDIPINE [Suspect]
     Indication: HYPERTENSION
     Route: 041
     Dates: start: 20040131, end: 20040202
  2. LIPITOR [Suspect]
     Indication: HYPERLIPIDAEMIA
     Route: 048
     Dates: end: 20040130
  3. FLOMOX [Suspect]
     Indication: INFECTION
     Route: 048
     Dates: start: 20040123, end: 20040130
  4. PENTCILLIN [Suspect]
     Indication: INFECTION
     Route: 042
     Dates: start: 20040131, end: 20040202
  5. NICHOLIN [Concomitant]
     Indication: CEREBRAL INFARCTION
     Route: 042
     Dates: start: 20040131, end: 20040209
  6. GLYCEROL 2.6% [Concomitant]
     Indication: CEREBRAL INFARCTION
     Route: 042
     Dates: start: 20040131, end: 20040209
  7. NIFEDIPINE [Concomitant]
     Indication: HYPERTENSION
     Route: 048
     Dates: end: 20040130
  8. BUFFERIN [Concomitant]
     Indication: CEREBRAL INFARCTION
     Route: 048
     Dates: end: 20040130
  9. NICERGOLINE [Concomitant]
     Indication: CEREBRAL INFARCTION
     Route: 048
     Dates: end: 20040130
  10. CARBOCISTEINE [Concomitant]
     Indication: INFECTION
     Route: 048
     Dates: start: 20040123, end: 20040130
  11. TRETOQUINOL HYDROCHLORIDE [Concomitant]
     Indication: INFECTION
     Route: 048
     Dates: start: 20040123, end: 20040130
  12. DIGOSIN [Concomitant]
     Indication: ATRIAL FIBRILLATION
     Route: 042
     Dates: start: 20040131, end: 20040204
  13. GASTER [Concomitant]
     Indication: GASTRITIS
     Route: 042
     Dates: start: 20040131, end: 20040210
  14. LANIRAPID [Concomitant]
     Indication: ATRIAL FIBRILLATION
     Dosage: TREATMENT STOPPED ON 30 JAN 2004 ABD RESTARTED ON 04 FEB 2004.
     Route: 048
     Dates: start: 20040204
  15. THEO-DUR [Concomitant]
     Dosage: TREATMENT STOPPED ON THE 30 JAN 2004 AND RESTARTED OB 04 FEB 2004.
     Route: 048
     Dates: start: 20040123
  16. LENDORM [Concomitant]
     Indication: INSOMNIA
     Dosage: TREATMENT STOPPED ON 30 JAN 2004 AND RESTARTED IN 13 FEB 2004.
     Route: 048

REACTIONS (4)
  - CEREBRAL INFARCTION [None]
  - HEPATIC FUNCTION ABNORMAL [None]
  - HYPERTENSION [None]
  - RHABDOMYOLYSIS [None]
